FAERS Safety Report 21458319 (Version 1)
Quarter: 2022Q4

REPORT INFORMATION
  Report Type: Spontaneous
  Country: US (occurrence: US)
  Receive Date: 20221014
  Receipt Date: 20221014
  Transmission Date: 20230113
  Serious: Yes (Other)
  Sender: FDA-Public Use
  Company Number: US-MYLANLABS-2022M1113879

PATIENT
  Age: 60 Year
  Sex: Male

DRUGS (6)
  1. EPIRUBICIN [Suspect]
     Active Substance: EPIRUBICIN
     Indication: Neurofibrosarcoma
     Dosage: 60 MILLIGRAM/SQ. METER, CYCLE (ON DAYS 1 AND 2; IN A 21 DAY CYCLE)
     Route: 065
     Dates: start: 20190603
  2. EPIRUBICIN [Suspect]
     Active Substance: EPIRUBICIN
     Dosage: 60 MILLIGRAM/SQ. METER, CYCLE (ON DAYS 1 AND 2; IN A 21 DAY CYCLE)
     Route: 065
     Dates: start: 20190625
  3. IFOSFAMIDE [Suspect]
     Active Substance: IFOSFAMIDE
     Indication: Neurofibrosarcoma
     Dosage: 3000 MILLIGRAM/SQ. METER, CYCLE (ON DAYS 1 AND 3 IN A 21 DAY CYCLE)
     Route: 065
     Dates: start: 20190603
  4. IFOSFAMIDE [Suspect]
     Active Substance: IFOSFAMIDE
     Dosage: 3000 MILLIGRAM/SQ. METER, CYCLE (ON DAYS 1 AND 3 IN A 21 DAY CYCLE)
     Route: 065
     Dates: start: 20190625
  5. MESNA [Suspect]
     Active Substance: MESNA
     Indication: Neurofibrosarcoma
     Dosage: UNK, CYCLE (IN A 21 DAY CYCLE)
     Route: 065
     Dates: start: 20190603
  6. MESNA [Suspect]
     Active Substance: MESNA
     Dosage: UNK, CYCLE (IN A 21 DAY CYCLE)
     Route: 065
     Dates: start: 20190625

REACTIONS (2)
  - Disease progression [Unknown]
  - Drug ineffective [Unknown]
